FAERS Safety Report 18204472 (Version 1)
Quarter: 2020Q3

REPORT INFORMATION
  Report Type: Spontaneous
  Country: US (occurrence: US)
  Receive Date: 20200828
  Receipt Date: 20200828
  Transmission Date: 20201103
  Serious: No
  Sender: FDA-Public Use
  Company Number: US-JNJFOC-20200829847

PATIENT
  Age: 21 Year
  Sex: Female
  Weight: 49.03 kg

DRUGS (1)
  1. WOMENS ROGAINE UNSCENTED [Suspect]
     Active Substance: MINOXIDIL
     Indication: ALOPECIA
     Dosage: 1 PUMP, PRODUCT WAS LAST ADMINISTERED ON 11?AUG?2020
     Route: 061
     Dates: start: 20200810

REACTIONS (2)
  - Incorrect dose administered [Unknown]
  - Migraine [Recovered/Resolved]

NARRATIVE: CASE EVENT DATE: 20200810
